FAERS Safety Report 9275790 (Version 1)
Quarter: 2013Q2

REPORT INFORMATION
  Report Type: Spontaneous
  Country: US (occurrence: US)
  Receive Date: 20130507
  Receipt Date: 20130507
  Transmission Date: 20140414
  Serious: No
  Sender: FDA-Public Use
  Company Number: US-BAYER-2013-056633

PATIENT
  Age: 74 Year
  Sex: Female
  Weight: 76.64 kg

DRUGS (6)
  1. ALEVE CAPLET [Suspect]
     Indication: ARTHRITIS
     Dosage: 1 DF, BID
     Route: 048
     Dates: start: 20130428
  2. ANTIBIOTICS [Concomitant]
  3. LEXAPRO [Concomitant]
  4. OXYBUTYNIN [Concomitant]
  5. PRILOSEC [Concomitant]
  6. BAYER ASPIRIN REGIMEN ADULT LOW STRENGTH [Concomitant]

REACTIONS (1)
  - Local swelling [Not Recovered/Not Resolved]
